FAERS Safety Report 20378746 (Version 3)
Quarter: 2022Q1

REPORT INFORMATION
  Report Type: Spontaneous
  Country: GB (occurrence: GB)
  Receive Date: 20220126
  Receipt Date: 20220203
  Transmission Date: 20220423
  Serious: Yes (Hospitalization, Other)
  Sender: FDA-Public Use
  Company Number: GB-009507513-2201GBR006594

PATIENT
  Age: 82 Year
  Sex: Female

DRUGS (2)
  1. PEMBROLIZUMAB [Suspect]
     Active Substance: PEMBROLIZUMAB
     Indication: Metastatic malignant melanoma
     Dosage: 400 MILLIGRAM, EVERY 6 WEEKS IV
     Route: 042
  2. PFIZER-BIONTECH COVID-19 VACCINE [Suspect]
     Active Substance: TOZINAMERAN
     Indication: Prophylaxis
     Dosage: UNK
     Dates: start: 2021

REACTIONS (9)
  - Stent placement [Unknown]
  - Coronary artery disease [Unknown]
  - Atrioventricular block [Unknown]
  - Myocarditis [Unknown]
  - Myasthenic syndrome [Unknown]
  - Myositis [Unknown]
  - Colitis [Unknown]
  - Hepatitis [Unknown]
  - Eyelid ptosis [Unknown]
